FAERS Safety Report 11528981 (Version 1)
Quarter: 2015Q3

REPORT INFORMATION
  Report Type: Spontaneous
  Country: US (occurrence: None)
  Receive Date: 20150918
  Receipt Date: 20150918
  Transmission Date: 20151125
  Serious: Yes (Other)
  Sender: FDA-Public Use
  Company Number: None

PATIENT
  Age: 55 Year
  Sex: Female

DRUGS (1)
  1. RIBAVARIN [Suspect]
     Active Substance: RIBAVIRIN
     Indication: HEPATITIS C
     Dosage: 200 MG 3 TABS BID ORAL
     Route: 048
     Dates: start: 20150723, end: 201509

REACTIONS (1)
  - Full blood count decreased [None]

NARRATIVE: CASE EVENT DATE: 201509
